FAERS Safety Report 4792355-3 (Version None)
Quarter: 2005Q4

REPORT INFORMATION
  Report Type: 
  Country: None (occurrence: None)
  Receive Date: 20051010
  Receipt Date: 20050115
  Transmission Date: 20060501
  Serious: Yes (Hospitalization)
  Sender: FDA-Public Use
  Company Number: BE-BOEHRINGER INGELHEIM PHARMACEUTICALS, INC.-2005-BL-00024BL

PATIENT
  Sex: Male
  Weight: 76 kg

DRUGS (4)
  1. TPV/RTV [Suspect]
     Indication: HIV INFECTION
     Route: 048
     Dates: start: 20030828, end: 20041110
  2. VIREAD [Concomitant]
     Indication: HIV INFECTION
     Route: 048
     Dates: start: 20030828, end: 20041110
  3. CRIXIVAN [Concomitant]
     Indication: HIV INFECTION
     Route: 048
     Dates: start: 20030828, end: 20041110
  4. FUZEON [Concomitant]
     Indication: HIV INFECTION
     Route: 058
     Dates: start: 20030828, end: 20041110

REACTIONS (2)
  - HIV WASTING SYNDROME [None]
  - INTESTINAL VILLI ATROPHY [None]
